FAERS Safety Report 7475029-X (Version None)
Quarter: 2011Q2

REPORT INFORMATION
  Report Type: 
  Country: None (occurrence: None)
  Receive Date: 20110509
  Receipt Date: 20110509
  Transmission Date: 20111010
  Serious: Yes (Life-Threatening)
  Sender: FDA-Public Use
  Company Number: None

PATIENT
  Age: 67 Year
  Sex: Male
  Weight: 117.9352 kg

DRUGS (3)
  1. VENTOLIN HFA [Suspect]
  2. PROAIR HFA [Suspect]
     Indication: ASTHMA
     Dosage: 2 METERED DOSES 4 TIMES A DAY INHAL
     Route: 055
     Dates: start: 20110201, end: 20110201
  3. PROAIR HFA [Suspect]
     Indication: CHRONIC OBSTRUCTIVE PULMONARY DISEASE
     Dosage: 2 METERED DOSES 4 TIMES A DAY INHAL
     Route: 055
     Dates: start: 20110201, end: 20110201

REACTIONS (2)
  - PRODUCT QUALITY ISSUE [None]
  - RESPIRATORY DISTRESS [None]
